FAERS Safety Report 22640457 (Version 2)
Quarter: 2023Q2

REPORT INFORMATION
  Report Type: Spontaneous
  Country: US (occurrence: US)
  Receive Date: 20230626
  Receipt Date: 20230629
  Transmission Date: 20230722
  Serious: No
  Sender: FDA-Public Use
  Company Number: US-002147023-NVSC2023US144557

PATIENT
  Age: 72 Year

DRUGS (1)
  1. XIIDRA [Suspect]
     Active Substance: LIFITEGRAST
     Indication: Dry eye
     Dosage: (EVERY 12 HOURS)
     Route: 047

REACTIONS (5)
  - Erythema [Unknown]
  - Swelling [Unknown]
  - Burning sensation [Unknown]
  - Pruritus [Unknown]
  - Hypersensitivity [Recovered/Resolved]
